FAERS Safety Report 4605853-X (Version None)
Quarter: 2005Q1

REPORT INFORMATION
  Report Type: 
  Country: None (occurrence: None)
  Receive Date: 20050116
  Receipt Date: 20040618
  Transmission Date: 20050727
  Serious: Yes (Other)
  Sender: FDA-Public Use
  Company Number: HQWYE539521JUN04

PATIENT
  Age: 84 Year
  Sex: Male
  Weight: 59.02 kg

DRUGS (3)
  1. EFFEXOR [Suspect]
     Indication: DEPRESSION
     Dosage: 75 MG 2X PER 1 DAY, ORAL; SEE IMAGE
     Route: 048
     Dates: start: 20040101, end: 20040101
  2. EFFEXOR [Suspect]
     Indication: DEPRESSION
     Dosage: 75 MG 2X PER 1 DAY, ORAL; SEE IMAGE
     Route: 048
     Dates: start: 20040101, end: 20040618
  3. EFFEXOR [Suspect]
     Indication: DEPRESSION
     Dosage: GRADUALLY INCREASED, ORAL;
     Route: 048
     Dates: start: 20040401, end: 20040101

REACTIONS (2)
  - HEPATIC ENZYME INCREASED [None]
  - HEPATITIS [None]
